FAERS Safety Report 26074605 (Version 1)
Quarter: 2025Q4

REPORT INFORMATION
  Report Type: Report from Study
  Country: EU (occurrence: EU)
  Receive Date: 20251121
  Receipt Date: 20251121
  Transmission Date: 20260118
  Serious: Yes (Hospitalization, Disabling)
  Sender: ACCORD
  Company Number: None

PATIENT
  Age: 53 Year
  Sex: Female

DRUGS (1)
  1. CAPECITABINE [Suspect]
     Active Substance: CAPECITABINE
     Indication: Metastases to liver
     Dosage: CAPECITABINE 500 MG, 2 TABLETS AFTER BREAKFAST AND 2 TABLETS AFTER DINNER.?UNKNOWN SPECIALTY.
     Dates: start: 20250616, end: 20250622

REACTIONS (1)
  - Necrotising fasciitis [Recovered/Resolved with Sequelae]

NARRATIVE: CASE EVENT DATE: 20250601
